FAERS Safety Report 11190004 (Version 1)
Quarter: 2015Q2

REPORT INFORMATION
  Report Type: Spontaneous
  Country: US (occurrence: US)
  Receive Date: 20150615
  Receipt Date: 20150615
  Transmission Date: 20150821
  Serious: No
  Sender: FDA-Public Use
  Company Number: US-PFIZER INC-2015197395

PATIENT
  Age: 63 Year
  Sex: Female
  Weight: 56 kg

DRUGS (5)
  1. CHANTIX [Interacting]
     Active Substance: VARENICLINE TARTRATE
     Dosage: UNK
     Dates: start: 20150401
  2. LISINOPRIL. [Interacting]
     Active Substance: LISINOPRIL
     Dosage: UNK
  3. XANAX [Suspect]
     Active Substance: ALPRAZOLAM
     Dosage: UNK
  4. LIPITOR [Interacting]
     Active Substance: ATORVASTATIN CALCIUM
     Dosage: UNK
  5. ACETYLSALICYLIC ACID [Interacting]
     Active Substance: ASPIRIN
     Dosage: UNK

REACTIONS (5)
  - Swollen tongue [Recovered/Resolved]
  - Anxiety [Unknown]
  - Condition aggravated [Unknown]
  - Drug interaction [Unknown]
  - Irritable bowel syndrome [Unknown]
